FAERS Safety Report 12939284 (Version 1)
Quarter: 2016Q4

REPORT INFORMATION
  Report Type: Spontaneous
  Country: US (occurrence: US)
  Receive Date: 20161114
  Receipt Date: 20161114
  Transmission Date: 20170207
  Serious: Yes (Other)
  Sender: FDA-Public Use
  Company Number: None

PATIENT
  Age: 47 Year
  Sex: Female
  Weight: 60.75 kg

DRUGS (7)
  1. NEURONTIN [Suspect]
     Active Substance: GABAPENTIN
     Indication: NEURALGIA
     Dosage: ?          QUANTITY:1 CAPSULE(S);?
     Route: 048
     Dates: start: 20160906, end: 20161030
  2. FISH OIL [Concomitant]
     Active Substance: FISH OIL
  3. OCCULVITE EYE VITAMINS [Concomitant]
  4. NEURONTIN [Concomitant]
     Active Substance: GABAPENTIN
  5. CURCUMIN [Concomitant]
     Active Substance: CURCUMIN
  6. CONCERTA [Concomitant]
     Active Substance: METHYLPHENIDATE HYDROCHLORIDE
  7. PREVAGEN [Concomitant]
     Active Substance: DIETARY SUPPLEMENT

REACTIONS (7)
  - Sleep disorder [None]
  - Balance disorder [None]
  - Asthenia [None]
  - Fatigue [None]
  - Emotional disorder [None]
  - Fall [None]
  - Musculoskeletal pain [None]

NARRATIVE: CASE EVENT DATE: 20161029
